FAERS Safety Report 9137131 (Version 3)
Quarter: 2013Q2

REPORT INFORMATION
  Report Type: Spontaneous
  Country: US (occurrence: US)
  Receive Date: 20130304
  Receipt Date: 20130408
  Transmission Date: 20140414
  Serious: Yes (Hospitalization, Disabling, Other)
  Sender: FDA-Public Use
  Company Number: US-009507513-1105USA03427

PATIENT
  Sex: Female
  Weight: 72.12 kg

DRUGS (10)
  1. FOSAMAX [Suspect]
     Indication: OSTEOPOROSIS
     Dosage: 70 MG, QW
     Route: 048
     Dates: start: 1999, end: 200708
  2. FOSAMAX [Suspect]
     Indication: OSTEOPENIA
  3. FOSAMAX PLUS D [Suspect]
     Indication: OSTEOPOROSIS
     Dosage: 70 MG, UNK
     Route: 048
     Dates: start: 200710, end: 200802
  4. BONIVA [Suspect]
     Indication: OSTEOPOROSIS
     Dates: start: 200803, end: 200906
  5. BONIVA [Suspect]
     Indication: OSTEOPENIA
  6. PREVACID [Concomitant]
     Dates: start: 1995
  7. ALBUTEROL [Concomitant]
     Dosage: UNK UNK, PRN
     Dates: start: 1990
  8. SINGULAIR [Concomitant]
     Route: 048
     Dates: start: 2000
  9. ADVAIR [Concomitant]
     Dates: start: 1995
  10. PROVENTIL [Concomitant]
     Dates: start: 2003

REACTIONS (73)
  - Femur fracture [Unknown]
  - Stress fracture [Not Recovered/Not Resolved]
  - Low turnover osteopathy [Not Recovered/Not Resolved]
  - Fracture nonunion [Unknown]
  - Aphasia [Unknown]
  - Uterine disorder [Unknown]
  - Bipolar disorder [Not Recovered/Not Resolved]
  - Thoracic vertebral fracture [Unknown]
  - Spinal compression fracture [Unknown]
  - Hypertension [Unknown]
  - Fracture [Unknown]
  - Gallbladder disorder [Unknown]
  - Presyncope [Unknown]
  - Electrocardiogram abnormal [Unknown]
  - Musculoskeletal disorder [Unknown]
  - Arthropathy [Not Recovered/Not Resolved]
  - Musculoskeletal disorder [Unknown]
  - Spinal pain [Not Recovered/Not Resolved]
  - Chest pain [Unknown]
  - Femur fracture [Recovering/Resolving]
  - Asthma [Unknown]
  - Gait disturbance [Unknown]
  - Anxiety [Unknown]
  - Stress [Unknown]
  - Pain [Unknown]
  - Osteoarthritis [Unknown]
  - Impaired healing [Unknown]
  - Joint injury [Unknown]
  - Road traffic accident [Unknown]
  - Dry eye [Unknown]
  - Hypotension [Unknown]
  - Kyphosis [Unknown]
  - Asthma [Unknown]
  - Tremor [Unknown]
  - Hypercholesterolaemia [Unknown]
  - Pain [Unknown]
  - Cough [Unknown]
  - Trigger finger [Unknown]
  - Atelectasis [Unknown]
  - Pneumonitis [Unknown]
  - Sedation [Unknown]
  - Head injury [Unknown]
  - Infectious mononucleosis [Unknown]
  - Panic attack [Unknown]
  - Sinus disorder [Unknown]
  - Tonsillar disorder [Unknown]
  - Atelectasis [Unknown]
  - Breast cyst [Unknown]
  - Osteoarthritis [Unknown]
  - Pulmonary hypertension [Unknown]
  - Blepharitis [Unknown]
  - Cough [Unknown]
  - Urinary incontinence [Unknown]
  - Amnesia [Unknown]
  - Bipolar I disorder [Unknown]
  - Treatment noncompliance [Unknown]
  - Electrocardiogram abnormal [Unknown]
  - Coronary artery disease [Unknown]
  - Dyspnoea exertional [Unknown]
  - Angina pectoris [Unknown]
  - Cyst [Unknown]
  - Syncope [Unknown]
  - Bursitis [Unknown]
  - Trigger finger [Unknown]
  - Joint crepitation [Unknown]
  - Hypoaesthesia [Unknown]
  - Palpitations [Unknown]
  - Chest discomfort [Unknown]
  - Insomnia [Not Recovered/Not Resolved]
  - Muscular weakness [Unknown]
  - Back pain [Unknown]
  - Headache [Recovered/Resolved]
  - Vertigo [Recovered/Resolved]
